FAERS Safety Report 5265937-2 (Version None)
Quarter: 2007Q1

REPORT INFORMATION
  Report Type: 
  Country: None (occurrence: None)
  Receive Date: 20070312
  Receipt Date: 20070312
  Transmission Date: 20070707
  Serious: Yes (Other)
  Sender: FDA-Public Use
  Company Number: None

PATIENT
  Sex: Male
  Weight: 70.3075 kg

DRUGS (1)
  1. PLAVIX [Suspect]
     Indication: STENT PLACEMENT
     Dosage: 75 QD PO
     Route: 048
     Dates: start: 20060421, end: 20070311

REACTIONS (4)
  - IMPAIRED DRIVING ABILITY [None]
  - NIGHT SWEATS [None]
  - SLEEP DISORDER [None]
  - SOMNOLENCE [None]
